FAERS Safety Report 7107818-5 (Version None)
Quarter: 2010Q4

REPORT INFORMATION
  Report Type: 
  Country: None (occurrence: None)
  Receive Date: 20101117
  Receipt Date: 20101101
  Transmission Date: 20110411
  Serious: Yes (Hospitalization)
  Sender: FDA-Public Use
  Company Number: US-BAYER-201029971NA

PATIENT
  Age: 25 Year
  Sex: Female
  Weight: 82 kg

DRUGS (7)
  1. OCELLA [Suspect]
     Indication: CONTRACEPTION
     Route: 048
     Dates: start: 20040301, end: 20100801
  2. YASMIN [Suspect]
     Indication: CONTRACEPTION
     Route: 048
     Dates: start: 20040101, end: 20100801
  3. YAZ [Suspect]
     Indication: CONTRACEPTION
     Route: 048
     Dates: start: 20040101, end: 20100801
  4. PHENYLBUTAZONE [Concomitant]
     Dates: start: 20000101
  5. ADVAIR DISKUS 100/50 [Concomitant]
     Dates: start: 20070101, end: 20080101
  6. CLEAR ADVANTAGE VITAMINS [Concomitant]
     Dates: start: 20040101
  7. HERBAL PRODUCTS [Concomitant]

REACTIONS (5)
  - ANXIETY [None]
  - CHOLECYSTECTOMY [None]
  - DEPRESSION [None]
  - MULTIPLE INJURIES [None]
  - PAIN [None]
